FAERS Safety Report 13339527 (Version 2)
Quarter: 2017Q1

REPORT INFORMATION
  Report Type: Report from Study
  Country: US (occurrence: US)
  Receive Date: 20170315
  Receipt Date: 20170322
  Transmission Date: 20170428
  Serious: Yes (Hospitalization, Other)
  Sender: FDA-Public Use
  Company Number: US-GILEAD-2017-0262391

PATIENT
  Age: 86 Year
  Sex: Female

DRUGS (1)
  1. RANOLAZINE [Suspect]
     Active Substance: RANOLAZINE
     Indication: ANGINA PECTORIS
     Dosage: 500 MG, QD
     Route: 048
     Dates: start: 201702

REACTIONS (14)
  - Myocardial infarction [Unknown]
  - Diabetes mellitus [Unknown]
  - Erythema [Unknown]
  - Fluid retention [Unknown]
  - Fear [Unknown]
  - Abasia [Unknown]
  - Off label use [Not Recovered/Not Resolved]
  - Tooth fracture [Unknown]
  - Angina pectoris [Not Recovered/Not Resolved]
  - Headache [Unknown]
  - Cerebrovascular accident [Unknown]
  - Toothache [Unknown]
  - Dyspnoea [Unknown]
  - Hypoaesthesia [Not Recovered/Not Resolved]
